FAERS Safety Report 14667506 (Version 3)
Quarter: 2018Q2

REPORT INFORMATION
  Report Type: Spontaneous
  Country: US (occurrence: US)
  Receive Date: 20180322
  Receipt Date: 20180501
  Transmission Date: 20180711
  Serious: Yes (Hospitalization, Disabling)
  Sender: FDA-Public Use
  Company Number: US-009507513-1803USA008632

PATIENT
  Age: 28 Year
  Sex: Female
  Weight: 78.91 kg

DRUGS (9)
  1. KEYTRUDA [Suspect]
     Active Substance: PEMBROLIZUMAB
     Indication: METASTATIC NEOPLASM
  2. COMPAZINE [Concomitant]
     Active Substance: PROCHLORPERAZINE MALEATE
     Dosage: UNK, PRN
  3. ONDANSETRON [Concomitant]
     Active Substance: ONDANSETRON
     Dosage: UNK, PRN
  4. POTASSIUM CHLORIDE. [Concomitant]
     Active Substance: POTASSIUM CHLORIDE
     Dosage: 20 MEQ, DAILY
  5. MIRALAX [Concomitant]
     Active Substance: POLYETHYLENE GLYCOL 3350
     Dosage: UNK, PRN
  6. SENNA S (DOCUSATE SODIUM (+) SENNA) [Concomitant]
     Dosage: UNK, PRN
  7. KEYTRUDA [Suspect]
     Active Substance: PEMBROLIZUMAB
     Indication: CERVIX CARCINOMA
     Dosage: 200 MG, Q21DAYS
     Route: 042
     Dates: start: 20180215, end: 20180308
  8. FENTANYL. [Concomitant]
     Active Substance: FENTANYL
     Dosage: 75 MICROGRAM, PATCH
  9. PERCOCET [Concomitant]
     Active Substance: ACETAMINOPHEN\OXYCODONE HYDROCHLORIDE
     Dosage: 10/135 MG, Q6, PRN

REACTIONS (7)
  - Dizziness [Unknown]
  - Neuropathy peripheral [Not Recovered/Not Resolved]
  - Intervertebral disc displacement [Unknown]
  - Spinal osteoarthritis [Unknown]
  - Product use in unapproved indication [Unknown]
  - Lumbar spinal stenosis [Unknown]
  - Axonal neuropathy [Not Recovered/Not Resolved]

NARRATIVE: CASE EVENT DATE: 2018
